FAERS Safety Report 22267536 (Version 1)
Quarter: 2023Q2

REPORT INFORMATION
  Report Type: Other
  Country: GB (occurrence: GB)
  Receive Date: 20230430
  Receipt Date: 20230430
  Transmission Date: 20230722
  Serious: Yes (Hospitalization)
  Sender: FDA-Public Use
  Company Number: GB-MACLEODS PHARMA EU LTD-MAC2023041003

PATIENT

DRUGS (7)
  1. CLOPIDOGREL [Suspect]
     Active Substance: CLOPIDOGREL BISULFATE
     Indication: Product used for unknown indication
     Dosage: 1 DOSAGE FORM, QD (ONE TO BE TAKEN EACH DAY)
     Route: 065
  2. CHOLECALCIFEROL [Concomitant]
     Active Substance: CHOLECALCIFEROL
     Indication: Product used for unknown indication
     Dosage: 1 DOSAGE FORM, BID (ONE TWICE A DAY)
     Route: 065
  3. LANSOPRAZOLE [Concomitant]
     Active Substance: LANSOPRAZOLE
     Indication: Product used for unknown indication
     Dosage: 1 DOSAGE FORM, QD (GASTRO-RESISTANT CAPSULES ONCE DAILY)
     Route: 065
  4. SPIRONOLACTONE [Concomitant]
     Active Substance: SPIRONOLACTONE
     Indication: Product used for unknown indication
     Dosage: 1 DOSAGE FORM, QD (ONE TO BE TAKEN DAILY)
     Route: 065
  5. THIAMINE [Concomitant]
     Active Substance: THIAMINE
     Indication: Product used for unknown indication
     Dosage: 1 DOSAGE FORM, TID (ONE TO BE TAKEN THREE TIMES A DAY)
     Route: 065
  6. FERROUS SULFATE [Concomitant]
     Active Substance: FERROUS SULFATE
     Indication: Product used for unknown indication
     Dosage: 1 DOSAGE FORM, TID (ONE TO BE TAKEN THREE TIMES A DAY)
     Route: 065
  7. FOLIC ACID [Concomitant]
     Active Substance: FOLIC ACID
     Indication: Product used for unknown indication
     Dosage: 1 DOSAGE FORM, QD (ONETO BE TAKEN EACH DAY)
     Route: 065

REACTIONS (1)
  - Subarachnoid haemorrhage [Recovered/Resolved]
